FAERS Safety Report 21766265 (Version 1)
Quarter: 2022Q4

REPORT INFORMATION
  Report Type: Spontaneous
  Country: ES (occurrence: ES)
  Receive Date: 20221222
  Receipt Date: 20221222
  Transmission Date: 20230113
  Serious: Yes (Death, Hospitalization)
  Sender: FDA-Public Use
  Company Number: None

PATIENT
  Age: 46 Year
  Sex: Female

DRUGS (7)
  1. PACLITAXEL [Suspect]
     Active Substance: PACLITAXEL
     Indication: Breast cancer metastatic
     Dosage: PACLITAXEL (2698A) , DURATION : 128 DAYS
     Dates: start: 20220530, end: 20221004
  2. DEXKETOPROFEN [Suspect]
     Active Substance: DEXKETOPROFEN
     Indication: Product used for unknown indication
     Dosage: DEXKETOPROFENO (7312A) , UNIT DOSE : 25 MG , FREQUENCY TIME : 8 HOUR , THERAPY END DATE : NASK
     Dates: start: 20220510
  3. PAROXETINE [Suspect]
     Active Substance: PAROXETINE
     Indication: Anxiety
     Dosage: PAROXETINA (2586A) , UNIT DOSE : 10 MG , FREQUENCY TIME : 24 HOUR  , THERAPY END DATE : NASK
     Dates: start: 20160126
  4. MORPHINE [Concomitant]
     Active Substance: MORPHINE
     Indication: Cancer pain
     Dosage: MORFINA (1982A) , UNIT DOSE: 10 MG , FREQUENCY TIME : 8 HOUR
     Dates: start: 20211115
  5. AVASTIN [Concomitant]
     Active Substance: BEVACIZUMAB
     Indication: Breast cancer metastatic
     Dosage: DURATION : 128 DAYS
     Dates: start: 20220530, end: 20221004
  6. LEVOTHYROXINE SODIUM [Concomitant]
     Active Substance: LEVOTHYROXINE SODIUM
     Indication: Hypothyroidism
     Dates: start: 20140923
  7. BENZETACIL [Concomitant]
     Indication: Product used for unknown indication
     Dosage: FORM STRENGTH : 1,200,000 IU , UNIT DOSE : 1,200,000 IU , FREQUENCY TIME : 1 MONTH

REACTIONS (5)
  - Hypocoagulable state [Fatal]
  - Hepatitis fulminant [Fatal]
  - Hepatic cytolysis [Fatal]
  - Encephalopathy [Fatal]
  - Jaundice [Fatal]

NARRATIVE: CASE EVENT DATE: 20220906
